FAERS Safety Report 4881393-8 (Version None)
Quarter: 2005Q4

REPORT INFORMATION
  Report Type: 
  Country: None (occurrence: None)
  Receive Date: 20051212
  Receipt Date: 20051007
  Transmission Date: 20060501
  Serious: No
  Sender: FDA-Public Use
  Company Number: 2005-02093

PATIENT
  Age: 55 Year
  Sex: Male
  Weight: 83.5 kg

DRUGS (10)
  1. VELCADE [Suspect]
     Indication: LYMPHOMA
     Dosage: 1.50 MG/M2, 2/WEEK, INTRAVENOUS
     Route: 042
     Dates: start: 20050815, end: 20051003
  2. KEFLEX [Suspect]
     Indication: BLEPHARITIS
     Dosage: 500.00 MG, Q8HR
     Dates: start: 20050912, end: 20050916
  3. KYTRIL [Concomitant]
  4. ACETAMINOPHEN [Concomitant]
  5. RITUXAN (RITUXIMAB0 [Concomitant]
  6. BENADRYL (SODIUM CITRATE, AMMONIUM CHLORIDE,  MENTHOL, DIPHENHYDRAMINE [Concomitant]
  7. SOLU-MEDROL (METHYLPREDNISOLONE SODUM SUCCINATE) [Concomitant]
  8. VARDENAFIL HYDROCHLORIDE (VARDENAFIL HYDROCHLORIDE0 [Concomitant]
  9. PERCOCET (PARACETAMOL, OXYCODONE HYDROCHLORIDE0 [Concomitant]
  10. FLEXERIL [Concomitant]

REACTIONS (6)
  - BLEPHARITIS [None]
  - CHALAZION [None]
  - DRUG ERUPTION [None]
  - PRURITUS [None]
  - RASH [None]
  - STOMACH DISCOMFORT [None]
